FAERS Safety Report 17346134 (Version 1)
Quarter: 2020Q1

REPORT INFORMATION
  Report Type: Spontaneous
  Country: FI (occurrence: FI)
  Receive Date: 20200129
  Receipt Date: 20200129
  Transmission Date: 20200409
  Serious: Yes (Life-Threatening)
  Sender: FDA-Public Use
  Company Number: FI-EXELIXIS-CABO-19022232

PATIENT
  Age: 60 Year
  Sex: Male

DRUGS (5)
  1. MELATONIN ORION [Concomitant]
     Active Substance: MELATONIN
     Dosage: 3,MG,DAILY ()
     Route: 048
  2. DEXAMETASON [Concomitant]
     Active Substance: DEXAMETHASONE
     Indication: METASTASES TO CENTRAL NERVOUS SYSTEM
     Dosage: ()
  3. AMLODIPIN ORION [Concomitant]
     Indication: HYPERTENSION
     Dosage: 10,MG,DAILY ()
     Route: 048
  4. CABOMETYX [Suspect]
     Active Substance: CABOZANTINIB S-MALATE
     Indication: RENAL CANCER METASTATIC
     Dosage: 60 MG, QD
     Route: 048
     Dates: start: 20190502, end: 20190517
  5. ORLOC [Concomitant]
     Active Substance: BISOPROLOL FUMARATE
     Dosage: 5,MG,DAILY ()
     Route: 048

REACTIONS (1)
  - Intestinal perforation [Not Recovered/Not Resolved]

NARRATIVE: CASE EVENT DATE: 20190517
